FAERS Safety Report 8677243 (Version 4)
Quarter: 2013Q1

REPORT INFORMATION
  Report Type: Spontaneous
  Country: JP (occurrence: JP)
  Receive Date: 20120723
  Receipt Date: 20130311
  Transmission Date: 20140127
  Serious: Yes (Other)
  Sender: FDA-Public Use
  Company Number: JP-JNJFOC-20120708007

PATIENT
  Age: 50 Year
  Sex: Male

DRUGS (7)
  1. DUROTEP MT [Suspect]
     Indication: CANCER PAIN
     Route: 062
     Dates: start: 20110715, end: 20110722
  2. STEROIDS NOS [Concomitant]
     Indication: PAIN
     Route: 048
  3. FENTANYL CITRATE [Concomitant]
     Indication: CANCER PAIN
     Route: 041
     Dates: start: 20110723
  4. GLYMACKEN [Concomitant]
     Indication: INTRACRANIAL HYPOTENSION
     Route: 041
  5. ZOSYN [Concomitant]
     Indication: PNEUMONIA
     Route: 041
  6. ALEVIATIN [Concomitant]
     Indication: CONVULSION
     Route: 042
  7. NSAIDS [Concomitant]
     Indication: PAIN
     Route: 065

REACTIONS (6)
  - Pneumonia aspiration [Unknown]
  - Depressed level of consciousness [Recovered/Resolved]
  - Drug effect increased [Recovered/Resolved]
  - Overdose [Recovered/Resolved]
  - Exposure to extreme temperature [Recovered/Resolved]
  - Dysphagia [Unknown]
